FAERS Safety Report 14913041 (Version 5)
Quarter: 2018Q2

REPORT INFORMATION
  Report Type: Spontaneous
  Country: IT (occurrence: IT)
  Receive Date: 20180518
  Receipt Date: 20180627
  Transmission Date: 20180711
  Serious: Yes (Other)
  Sender: FDA-Public Use
  Company Number: PHHY2018IT002050

PATIENT
  Age: 19 Year
  Sex: Female

DRUGS (35)
  1. FILGRASTIM [Suspect]
     Active Substance: FILGRASTIM
     Dosage: 5 UG/KG DAILY, CYCLIC (CYCLE 3)
     Route: 058
  2. BLINCYTO [Suspect]
     Active Substance: BLINATUMOMAB
     Indication: ACUTE LYMPHOCYTIC LEUKAEMIA
     Dosage: UNK
     Route: 042
  3. LENOGRASTIM [Suspect]
     Active Substance: LENOGRASTIM
     Dosage: 10 UG/M2, CYCLIC (CYCLE 7) , 8 TO HARVEST/ANC GREATER THAN 1.0
     Route: 058
  4. MERCAPTOPURINE. [Suspect]
     Active Substance: MERCAPTOPURINE
     Indication: ACUTE LYMPHOCYTIC LEUKAEMIA
     Dosage: 60 MG/M2 DAILY, CYCLIC, DAY 1-14
     Route: 048
  5. CYCLOPHOSPHAMIDE. [Suspect]
     Active Substance: CYCLOPHOSPHAMIDE
     Dosage: 300 MG/M2 DAILY, CYCLIC, DAY -3 TO-1
     Route: 042
  6. CYTARABINE. [Suspect]
     Active Substance: CYTARABINE
     Dosage: 75 MG/M2, QD ((CYCLIC (CYCLE 2 DAY 2-5, 9-12))
     Route: 058
  7. VINCRISTINE [Suspect]
     Active Substance: VINCRISTINE
     Indication: ACUTE LYMPHOCYTIC LEUKAEMIA
     Dosage: 1.4 MG/M2, CYCLIC (MAX 2 MG INFUSION TIME: PUSH, DAY 1, 8, 15, 22)
     Route: 042
  8. DEXAMETHASONE SODIUM PHOSPHATE. [Suspect]
     Active Substance: DEXAMETHASONE SODIUM PHOSPHATE
     Dosage: 5 MG/M2, CYCLIC (5 UG/KG DAILY, CYCLIC, 5 TO ANC }1.0)
     Route: 048
  9. CYCLOPHOSPHAMIDE. [Suspect]
     Active Substance: CYCLOPHOSPHAMIDE
     Dosage: 1000 MG/M2 DAILY, CYCLIC (CYCLE 2)
     Route: 042
  10. BLINATUMOMAB [Suspect]
     Active Substance: BLINATUMOMAB
     Indication: ACUTE LYMPHOCYTIC LEUKAEMIA
     Dosage: UNK (ONLY ONE CYCLE)
     Route: 065
  11. INOTUZUMAB OZOGAMICIN [Concomitant]
     Active Substance: INOTUZUMAB OZOGAMICIN
     Indication: PRODUCT USED FOR UNKNOWN INDICATION
     Dosage: UNK
     Route: 065
  12. FOLINIC ACID [Suspect]
     Active Substance: LEUCOVORIN
     Indication: ACUTE LYMPHOCYTIC LEUKAEMIA
     Dosage: UNK
     Route: 042
  13. CYCLOPHOSPHAMIDE. [Suspect]
     Active Substance: CYCLOPHOSPHAMIDE
     Dosage: 300 MG/M2, QD (CYCLIC DAY -3 TO-1)
     Route: 042
  14. FLUDARABINE [Suspect]
     Active Substance: FLUDARABINE PHOSPHATE
     Indication: ACUTE LYMPHOCYTIC LEUKAEMIA
     Dosage: 50 MG/M2, QD (DAY 3-4-5)
     Route: 065
     Dates: start: 20150904
  15. THIOTEPA. [Suspect]
     Active Substance: THIOTEPA
     Indication: ACUTE LYMPHOCYTIC LEUKAEMIA
     Dosage: 5 MG/KG, UNK (5MG/KG DAY1-2)
     Route: 042
     Dates: start: 20150904
  16. FILGRASTIM [Suspect]
     Active Substance: FILGRASTIM
     Indication: ACUTE LYMPHOCYTIC LEUKAEMIA
     Dosage: 5 UG/KG, QD
     Route: 058
  17. IDARUBICIN [Suspect]
     Active Substance: IDARUBICIN
     Indication: ACUTE LYMPHOCYTIC LEUKAEMIA
     Dosage: 12 MG/M2, QD (CYCLIC; DAY1,2 (CYCLE1 AND 2) INFUSION TIME: 30 MIN)
     Route: 042
  18. PREDNISONE. [Suspect]
     Active Substance: PREDNISONE
     Indication: ACUTE LYMPHOCYTIC LEUKAEMIA
     Dosage: 20 MG/M2, BID (QL 2 H CYCLIC)
     Route: 048
  19. CYTARABINE. [Suspect]
     Active Substance: CYTARABINE
     Indication: ACUTE LYMPHOCYTIC LEUKAEMIA
     Dosage: 2000 MG/M2, BID ((CYCLIC (QL 2H) CYCLE 7))
     Route: 042
  20. CYTARABINE. [Suspect]
     Active Substance: CYTARABINE
     Dosage: 4000 MG/M2, BID (CYCLIC (QL 2H) CYCLE 7)
     Route: 042
  21. PREDNISONE. [Suspect]
     Active Substance: PREDNISONE
     Dosage: 40 MG/M2, BID ((QL 2 H CYCLIC)
     Route: 048
  22. MERCAPTOPURINE. [Suspect]
     Active Substance: MERCAPTOPURINE
     Dosage: 60 MG/M2, QD (CYCLIC DAY 1-14)
     Route: 048
  23. FILGRASTIM [Suspect]
     Active Substance: FILGRASTIM
     Dosage: 5 UG/KG, QD (5 MUG/KG, QD (CYCLIC (CYCLE 2))
     Route: 058
  24. LENOGRASTIM [Suspect]
     Active Substance: LENOGRASTIM
     Indication: ACUTE LYMPHOCYTIC LEUKAEMIA
     Dosage: 5 UG/KG, QD CYCLIC (CYCLE 3)
     Route: 058
  25. LENOGRASTIM [Suspect]
     Active Substance: LENOGRASTIM
     Dosage: 10 UG/KG, QD (CYCLIC, 5 TO ANC } 1.0 )
     Route: 065
  26. CYCLOPHOSPHAMIDE. [Suspect]
     Active Substance: CYCLOPHOSPHAMIDE
     Indication: ACUTE LYMPHOCYTIC LEUKAEMIA
     Dosage: 1000 MG/M2, QD
     Route: 042
  27. FILGRASTIM [Suspect]
     Active Substance: FILGRASTIM
     Dosage: 10 UG/KG, UNK ((CYCLE 7), 8 TO HARVEST/ANC GREATER THAN 1.0)
     Route: 058
  28. LENOGRASTIM [Suspect]
     Active Substance: LENOGRASTIM
     Dosage: 5 UG/KG, QD (CYCLIC CYCLE 3)
     Route: 058
  29. DEXAMETHASONE SODIUM PHOSPHATE. [Suspect]
     Active Substance: DEXAMETHASONE SODIUM PHOSPHATE
     Dosage: 5 MG/M2, CYCLIC (5 UG/KG DAILY, CYCLIC, 5 TO ANC }1.0)
     Route: 048
  30. CYTARABINE. [Suspect]
     Active Substance: CYTARABINE
     Dosage: 75 MG/M2, QD ((CYCLIC (CYCLE 2))
     Route: 042
  31. LENOGRASTIM [Suspect]
     Active Substance: LENOGRASTIM
     Dosage: 5 UG/KG, QD CYCLIC, ANC{0.5 TO }1.0 (CYCLE 2
     Route: 058
  32. BUSULFAN. [Suspect]
     Active Substance: BUSULFAN
     Indication: ACUTE LYMPHOCYTIC LEUKAEMIA
     Dosage: 9.6 MG/KG, UNK
     Route: 042
  33. METHOTREXATE. [Suspect]
     Active Substance: METHOTREXATE
     Indication: ACUTE LYMPHOCYTIC LEUKAEMIA
     Dosage: 5000 MG/M2, CYCLIC
     Route: 042
  34. DEXAMETHASONE SODIUM PHOSPHATE. [Suspect]
     Active Substance: DEXAMETHASONE SODIUM PHOSPHATE
     Indication: ACUTE LYMPHOCYTIC LEUKAEMIA
     Dosage: 5 MG/M2, CYCLIC (CYCLIC DAY 1-5 (CYCLE 2))
     Route: 042
  35. DEXAMETHASONE SODIUM PHOSPHATE. [Suspect]
     Active Substance: DEXAMETHASONE SODIUM PHOSPHATE
     Dosage: 10 MG/M2, CYCLIC  (CYCLIC DAY 1-5, 15-19)
     Route: 042

REACTIONS (3)
  - Neurotoxicity [Recovered/Resolved]
  - Seizure [Recovered/Resolved]
  - Acute lymphocytic leukaemia recurrent [Unknown]
